FAERS Safety Report 4527972-9 (Version None)
Quarter: 2004Q4

REPORT INFORMATION
  Report Type: 
  Country: None (occurrence: None)
  Receive Date: 20041123
  Receipt Date: 20040130
  Transmission Date: 20050328
  Serious: Yes (Hospitalization, Other)
  Sender: FDA-Public Use
  Company Number: 2004002816

PATIENT
  Sex: Female

DRUGS (1)
  1. LIPITOR [Suspect]
     Indication: LIPIDS INCREASED
     Dosage: 10 MG (DAILY), ORAL
     Route: 048
     Dates: start: 20010401, end: 20031122

REACTIONS (2)
  - BACK PAIN [None]
  - RHABDOMYOLYSIS [None]
